FAERS Safety Report 4582674-8 (Version None)
Quarter: 2005Q1

REPORT INFORMATION
  Report Type: 
  Country: None (occurrence: None)
  Receive Date: 20050125
  Receipt Date: 20040825
  Transmission Date: 20050727
  Serious: No
  Sender: FDA-Public Use
  Company Number: USA040876441

PATIENT
  Age: 56 Year
  Sex: Female
  Weight: 118 kg

DRUGS (2)
  1. FORTEO [Suspect]
     Indication: OSTEOPOROSIS
     Dosage: 20 UG/1 DAY
     Dates: start: 20040802
  2. PROTONIX [Concomitant]

REACTIONS (4)
  - FATIGUE [None]
  - INFECTION [None]
  - LUNG DISORDER [None]
  - PNEUMONIA [None]
